FAERS Safety Report 8244985-4 (Version None)
Quarter: 2012Q1

REPORT INFORMATION
  Report Type: 
  Country: None (occurrence: None)
  Receive Date: 20120329
  Receipt Date: 20111212
  Transmission Date: 20120608
  Serious: Yes (Other)
  Sender: FDA-Public Use
  Company Number: US-MYLANLABS-2011S1023154

PATIENT
  Age: 50 Year
  Sex: Male

DRUGS (2)
  1. FENTANYL-100 [Suspect]
     Indication: PAIN
     Dosage: CHANGE Q72H
     Route: 062
     Dates: start: 20111001
  2. FENTANYL-100 [Suspect]
     Indication: HEADACHE
     Dosage: CHANGE Q72H
     Route: 062
     Dates: start: 20111001

REACTIONS (3)
  - PAIN [None]
  - DRUG WITHDRAWAL SYNDROME [None]
  - DRUG EFFECT DECREASED [None]
